FAERS Safety Report 5211958-5 (Version None)
Quarter: 2007Q1

REPORT INFORMATION
  Report Type: 
  Country: None (occurrence: None)
  Receive Date: 20070116
  Receipt Date: 20070116
  Transmission Date: 20070707
  Serious: Yes (Hospitalization)
  Sender: FDA-Public Use
  Company Number: None

PATIENT
  Age: 39 Year
  Sex: Female

DRUGS (1)
  1. XIGRIS [Suspect]
     Indication: LUNG INJURY
     Dosage: 24UG/KG/HR 041
     Dates: start: 20061221, end: 20061225

REACTIONS (4)
  - INCREASED UPPER AIRWAY SECRETION [None]
  - RESPIRATORY FAILURE [None]
  - STRIDOR [None]
  - SWELLING [None]
